FAERS Safety Report 11401359 (Version 2)
Quarter: 2015Q3

REPORT INFORMATION
  Report Type: Spontaneous
  Country: IT (occurrence: IT)
  Receive Date: 20150820
  Receipt Date: 20150824
  Transmission Date: 20151125
  Serious: Yes (Hospitalization)
  Sender: FDA-Public Use
  Company Number: PHHY2015IT097659

PATIENT
  Age: 52 Year
  Sex: Female

DRUGS (4)
  1. TRITTICO [Concomitant]
     Active Substance: TRAZODONE HYDROCHLORIDE
     Indication: ANXIETY
     Dosage: 1 DF, UNK
     Route: 065
  2. RIVOTRIL [Suspect]
     Active Substance: CLONAZEPAM
     Indication: ANXIETY
     Dosage: 7 DF, ONCE/SINGLE
     Route: 048
     Dates: start: 20150203
  3. QUETIAPINA MYLAN GENERICS [Suspect]
     Active Substance: QUETIAPINE
     Indication: PRODUCT USED FOR UNKNOWN INDICATION
     Dosage: 5 DF, ONCE/SINGLE
     Route: 048
     Dates: start: 20150203
  4. FLUOXETINE [Suspect]
     Active Substance: FLUOXETINE\FLUOXETINE HYDROCHLORIDE
     Indication: DEPRESSION
     Dosage: 3 DF, ONCE/SINGLE
     Route: 048
     Dates: start: 20150203

REACTIONS (4)
  - Coma scale [Recovered/Resolved]
  - Somnolence [Recovered/Resolved]
  - Coma scale abnormal [None]
  - Overdose [Recovered/Resolved]

NARRATIVE: CASE EVENT DATE: 20150203
